FAERS Safety Report 4981672-X (Version None)
Quarter: 2006Q2

REPORT INFORMATION
  Report Type: 
  Country: None (occurrence: None)
  Receive Date: 20060425
  Receipt Date: 20060413
  Transmission Date: 20061013
  Serious: Yes (Other)
  Sender: FDA-Public Use
  Company Number: US-JNJFOC-20060404577

PATIENT
  Sex: Male
  Weight: 86.18 kg

DRUGS (1)
  1. DURAGESIC-100 [Suspect]
     Route: 062

REACTIONS (5)
  - ARTHRALGIA [None]
  - BACK PAIN [None]
  - CONCUSSION [None]
  - NECK PAIN [None]
  - ROAD TRAFFIC ACCIDENT [None]
